FAERS Safety Report 5351880-7 (Version None)
Quarter: 2007Q2

REPORT INFORMATION
  Report Type: 
  Country: None (occurrence: None)
  Receive Date: 20070609
  Receipt Date: 20070531
  Transmission Date: 20071010
  Serious: Yes (Life-Threatening, Hospitalization, Other)
  Sender: FDA-Public Use
  Company Number: TR-ABBOTT-07P-161-0370027-00

PATIENT
  Age: 20 Year
  Sex: Female

DRUGS (1)
  1. TARKA [Suspect]
     Indication: DRUG USE FOR UNKNOWN INDICATION
     Route: 048
     Dates: start: 20070529, end: 20070529

REACTIONS (2)
  - HYPOTENSION [None]
  - SUICIDE ATTEMPT [None]
